FAERS Safety Report 6697380-3 (Version None)
Quarter: 2010Q2

REPORT INFORMATION
  Report Type: 
  Country: None (occurrence: None)
  Receive Date: 20100426
  Receipt Date: 20100420
  Transmission Date: 20101027
  Serious: Yes (Life-Threatening, Hospitalization)
  Sender: FDA-Public Use
  Company Number: AU-ASTRAZENECA-2010SE17646

PATIENT
  Age: 32923 Day
  Sex: Female

DRUGS (6)
  1. ATACAND HCT [Suspect]
     Dosage: 16/12.5 MG, 1 DOSE DAILY
     Route: 048
     Dates: end: 20100228
  2. CELERY SEED [Suspect]
     Route: 048
     Dates: start: 20100219, end: 20100228
  3. PHYSIOTENS [Suspect]
     Dates: end: 20100228
  4. TOLVON [Suspect]
     Dates: end: 20100228
  5. XANAX [Suspect]
     Dates: end: 20100228
  6. PRAVACHOL [Concomitant]

REACTIONS (3)
  - CONFUSIONAL STATE [None]
  - HYPONATRAEMIA [None]
  - LOSS OF CONSCIOUSNESS [None]
